FAERS Safety Report 9705512 (Version 1)
Quarter: 2013Q4

REPORT INFORMATION
  Report Type: Report from Study
  Country: FR (occurrence: FR)
  Receive Date: 20131122
  Receipt Date: 20131122
  Transmission Date: 20140711
  Serious: Yes (Other)
  Sender: FDA-Public Use
  Company Number: FR-CELGENEUS-056-50794-13112227

PATIENT
  Age: 74 Year
  Sex: 0

DRUGS (1)
  1. VIDAZA [Suspect]
     Indication: MYELODYSPLASTIC SYNDROME
     Route: 065

REACTIONS (1)
  - Neoplasm malignant [Unknown]
